FAERS Safety Report 5982777-7 (Version None)
Quarter: 2008Q4

REPORT INFORMATION
  Report Type: 
  Country: None (occurrence: None)
  Receive Date: 20081208
  Receipt Date: 20081103
  Transmission Date: 20090506
  Serious: No
  Sender: FDA-Public Use
  Company Number: US-BAYER-200838065NA

PATIENT
  Age: 37 Year
  Sex: Female
  Weight: 63 kg

DRUGS (1)
  1. MIRENA [Suspect]
     Indication: CONTRACEPTION
     Route: 015
     Dates: start: 20071101, end: 20081014

REACTIONS (5)
  - ABDOMINAL DISTENSION [None]
  - ALOPECIA [None]
  - DYSPAREUNIA [None]
  - MOOD SWINGS [None]
  - WEIGHT INCREASED [None]
